FAERS Safety Report 10280075 (Version 1)
Quarter: 2014Q3

REPORT INFORMATION
  Report Type: Spontaneous
  Country: US (occurrence: None)
  Receive Date: 20140702
  Receipt Date: 20140702
  Transmission Date: 20150326
  Serious: Yes (Hospitalization)
  Sender: FDA-Public Use
  Company Number: AUR-APL-2014-06832

PATIENT
  Age: 11 Year
  Sex: Female

DRUGS (1)
  1. CETIRIZINE [Suspect]
     Active Substance: CETIRIZINE HYDROCHLORIDE
     Indication: PRODUCT USED FOR UNKNOWN INDICATION

REACTIONS (11)
  - Malaise [None]
  - Macule [None]
  - Acute generalised exanthematous pustulosis [None]
  - Rash pruritic [None]
  - Red blood cell sedimentation rate increased [None]
  - Rash generalised [None]
  - Rash pustular [None]
  - Rash erythematous [None]
  - C-reactive protein increased [None]
  - Neutrophilia [None]
  - Vomiting [None]
